FAERS Safety Report 5373880-3 (Version None)
Quarter: 2007Q2

REPORT INFORMATION
  Report Type: 
  Country: None (occurrence: None)
  Receive Date: 20070615
  Receipt Date: 20060620
  Transmission Date: 20071010
  Serious: Yes (Other)
  Sender: FDA-Public Use
  Company Number: 200611910US

PATIENT
  Age: 35 Year
  Sex: Male

DRUGS (4)
  1. LANTUS [Suspect]
     Indication: DIABETES MELLITUS INSULIN-DEPENDENT
     Dosage: 30 U HS SC
     Route: 058
     Dates: start: 20051101
  2. OPTICLIK [Suspect]
     Dates: start: 20051101
  3. HUMALOG [Concomitant]
  4. ZYRTEC [Concomitant]

REACTIONS (3)
  - BLOOD GLUCOSE INCREASED [None]
  - HYPERGLYCAEMIA [None]
  - WEIGHT INCREASED [None]
